FAERS Safety Report 9793031 (Version 1)
Quarter: 2014Q1

REPORT INFORMATION
  Report Type: Spontaneous
  Country: FR (occurrence: FR)
  Receive Date: 20140102
  Receipt Date: 20140102
  Transmission Date: 20141002
  Serious: Yes (Hospitalization)
  Sender: FDA-Public Use
  Company Number: FR-PFIZER INC-2013369814

PATIENT
  Age: 81 Year
  Sex: Male

DRUGS (20)
  1. TRIFLUCAN [Suspect]
     Dosage: UNK
     Route: 048
     Dates: start: 20131120, end: 20131121
  2. CEFTRIAXONE [Concomitant]
     Dosage: UNK
     Route: 030
     Dates: start: 20131115, end: 20131119
  3. GABAPENTIN [Concomitant]
  4. FENTANYL [Concomitant]
  5. ESOMEPRAZOLE [Concomitant]
  6. KARDEGIC [Concomitant]
  7. AMLODIPINE [Concomitant]
  8. BISOPROLOL [Concomitant]
  9. DISCOTRINE [Concomitant]
  10. PROCORALAN [Concomitant]
  11. CANDESARTAN [Concomitant]
  12. FUROSEMIDE [Concomitant]
  13. LANTUS [Concomitant]
  14. NOVORAPID [Concomitant]
  15. METFORMIN [Concomitant]
  16. PREDNISONE [Concomitant]
  17. FERO-GRAD LP [Concomitant]
  18. SPASFON [Concomitant]
  19. ZOPICLONE [Concomitant]
  20. DAFALGAN [Concomitant]

REACTIONS (1)
  - Oedema [Recovered/Resolved]
